FAERS Safety Report 25150241 (Version 1)
Quarter: 2025Q2

REPORT INFORMATION
  Report Type: Other
  Country: US (occurrence: US)
  Receive Date: 20250402
  Receipt Date: 20250402
  Transmission Date: 20250716
  Serious: Yes (Other)
  Sender: Apozeal Pharmaceuticals
  Company Number: US-Apozeal Pharmaceuticals-2174105

PATIENT
  Age: 42 Year
  Sex: Female

DRUGS (5)
  1. LACTULOSE [Suspect]
     Active Substance: LACTULOSE
     Indication: Product used for unknown indication
  2. CARVEDILOL [Suspect]
     Active Substance: CARVEDILOL
  3. ASPIRIN [Suspect]
     Active Substance: ASPIRIN
  4. SPIRONOLACTONE [Suspect]
     Active Substance: SPIRONOLACTONE
  5. FUROSEMIDE [Suspect]
     Active Substance: FUROSEMIDE

REACTIONS (1)
  - Acute kidney injury [Unknown]
